FAERS Safety Report 9673331 (Version 3)
Quarter: 2013Q4

REPORT INFORMATION
  Report Type: Spontaneous
  Country: US (occurrence: US)
  Receive Date: 20131106
  Receipt Date: 20131202
  Transmission Date: 20140711
  Serious: No
  Sender: FDA-Public Use
  Company Number: US-AMGEN-USASP2013070333

PATIENT
  Age: 56 Year
  Sex: Female
  Weight: 112.4 kg

DRUGS (7)
  1. ENBREL [Suspect]
     Indication: PSORIATIC ARTHROPATHY
     Dosage: 50 MG, QWK
     Route: 058
     Dates: start: 201212, end: 20131003
  2. ENBREL [Suspect]
     Indication: PSORIASIS
  3. NORVASC [Concomitant]
     Indication: HYPERTENSION
     Dosage: 5 MG, QD
     Route: 048
     Dates: start: 201308
  4. GABAPENTIN [Concomitant]
     Indication: NEUROPATHY PERIPHERAL
     Dosage: 300 MG, QHS
     Route: 048
     Dates: start: 201310
  5. LOSARTAN/HCTZ GT [Concomitant]
     Indication: HYPERTENSION
     Dosage: 100/25, QD
     Route: 048
     Dates: start: 201106
  6. METFORMIN [Concomitant]
     Indication: DIABETES MELLITUS
     Dosage: 1000 UNK, BID
     Route: 048
     Dates: start: 201212
  7. SIMVASTATIN [Concomitant]
     Indication: HYPERLIPIDAEMIA
     Dosage: 10 UNK, QHS
     Route: 048
     Dates: start: 201003

REACTIONS (9)
  - Pain in extremity [Recovering/Resolving]
  - Hypoaesthesia [Not Recovered/Not Resolved]
  - Mobility decreased [Not Recovered/Not Resolved]
  - Joint crepitation [Not Recovered/Not Resolved]
  - Musculoskeletal pain [Not Recovered/Not Resolved]
  - Arthralgia [Not Recovered/Not Resolved]
  - Lumbar radiculopathy [Unknown]
  - Facet joint syndrome [Unknown]
  - Paraesthesia [Recovering/Resolving]
